FAERS Safety Report 6212911-5 (Version None)
Quarter: 2009Q2

REPORT INFORMATION
  Report Type: 
  Country: None (occurrence: None)
  Receive Date: 20090603
  Receipt Date: 20090521
  Transmission Date: 20091009
  Serious: Yes (Other)
  Sender: FDA-Public Use
  Company Number: US-AVENTIS-200914439US

PATIENT
  Age: 57 Year
  Sex: Male

DRUGS (6)
  1. LOVENOX [Suspect]
     Indication: DEEP VEIN THROMBOSIS
     Dates: start: 20090519
  2. ATENOLOL [Concomitant]
     Dosage: DOSE: UNK
  3. BENAZEPRIL HYDROCHLORIDE [Concomitant]
     Dosage: DOSE: UNK
  4. ZANAFLEX [Concomitant]
     Dosage: DOSE: UNK
  5. AMBIEN [Concomitant]
     Dosage: DOSE: UNK
  6. DEXAMETHASONE [Concomitant]
     Dosage: DOSE: UNK

REACTIONS (2)
  - CHEST PAIN [None]
  - DYSPNOEA EXERTIONAL [None]
